FAERS Safety Report 5215361-3 (Version None)
Quarter: 2007Q1

REPORT INFORMATION
  Report Type: 
  Country: None (occurrence: None)
  Receive Date: 20070116
  Receipt Date: 20070109
  Transmission Date: 20070707
  Serious: Yes (Life-Threatening)
  Sender: FDA-Public Use
  Company Number: 2006-03207

PATIENT
  Age: 59 Year

DRUGS (7)
  1. VELCADE [Suspect]
     Indication: MULTIPLE MYELOMA
  2. DOXORUBICIN HCL [Suspect]
     Indication: MULTIPLE MYELOMA
  3. DEXAMETHASONE [Suspect]
     Indication: MULTIPLE MYELOMA
  4. MELPHALAN (MELPHALAN) VIAL [Suspect]
     Indication: MULTIPLE MYELOMA
  5. PRIMPERAN TAB [Concomitant]
  6. OMEPRAZOLE [Concomitant]
  7. MORPHINE [Concomitant]

REACTIONS (5)
  - ENCEPHALITIS HERPES [None]
  - HEPATITIS VIRAL [None]
  - POST PROCEDURAL HAEMORRHAGE [None]
  - TACHYCARDIA [None]
  - VENTRICULAR EXTRASYSTOLES [None]
